FAERS Safety Report 19011969 (Version 1)
Quarter: 2021Q1

REPORT INFORMATION
  Report Type: Spontaneous
  Country: JP (occurrence: JP)
  Receive Date: 20210316
  Receipt Date: 20210316
  Transmission Date: 20210420
  Serious: Yes (Other)
  Sender: FDA-Public Use
  Company Number: NVSJ2021JP003469

PATIENT
  Age: 72 Year
  Sex: Male

DRUGS (1)
  1. NILOTINIB [Suspect]
     Active Substance: NILOTINIB
     Indication: CHRONIC MYELOID LEUKAEMIA
     Dosage: UNK
     Route: 065

REACTIONS (7)
  - Weight increased [Unknown]
  - Pleural effusion [Unknown]
  - Pericarditis malignant [Unknown]
  - Pericardial effusion [Recovering/Resolving]
  - Gastric cancer recurrent [Unknown]
  - Dyspnoea [Unknown]
  - Palpitations [Unknown]
